FAERS Safety Report 13923158 (Version 1)
Quarter: 2017Q3

REPORT INFORMATION
  Report Type: Spontaneous
  Country: US (occurrence: None)
  Receive Date: 20170830
  Receipt Date: 20170830
  Transmission Date: 20171127
  Serious: No
  Sender: FDA-Public Use
  Company Number: None

PATIENT
  Age: 57 Year
  Sex: Female

DRUGS (1)
  1. ZIPRASIDONE 40MG DR. REDDY^S [Suspect]
     Active Substance: ZIPRASIDONE
     Dosage: 3 CAPS (MORNING) DRY MOUTH?2 CAPS (EVENING)
     Route: 048
     Dates: start: 20170827

REACTIONS (4)
  - Contrast media reaction [None]
  - Headache [None]
  - Mood altered [None]
  - Nausea [None]

NARRATIVE: CASE EVENT DATE: 20170827
